FAERS Safety Report 16672039 (Version 3)
Quarter: 2019Q3

REPORT INFORMATION
  Report Type: Spontaneous
  Country: JP (occurrence: JP)
  Receive Date: 20190806
  Receipt Date: 20190919
  Transmission Date: 20191004
  Serious: Yes (Hospitalization, Disabling, Other)
  Sender: FDA-Public Use
  Company Number: JP-BRISTOL-MYERS SQUIBB COMPANY-BMS-2018-113159

PATIENT
  Age: 77 Year
  Sex: Male
  Weight: 63.2 kg

DRUGS (1)
  1. OPDIVO [Suspect]
     Active Substance: NIVOLUMAB
     Indication: METASTATIC RENAL CELL CARCINOMA
     Dosage: 189 MILLIGRAM
     Route: 041
     Dates: start: 20180410, end: 20181023

REACTIONS (10)
  - Addison^s disease [Not Recovered/Not Resolved]
  - Polymyositis [Recovered/Resolved]
  - Chronic myeloid leukaemia [Unknown]
  - Cataract [Unknown]
  - Thyroiditis [Unknown]
  - Atrial flutter [Recovered/Resolved]
  - Arthritis [Recovered/Resolved]
  - Hepatic function abnormal [Recovering/Resolving]
  - Chronic obstructive pulmonary disease [Unknown]
  - Diabetes mellitus [Unknown]

NARRATIVE: CASE EVENT DATE: 20180419
